FAERS Safety Report 19427122 (Version 2)
Quarter: 2021Q3

REPORT INFORMATION
  Report Type: Report from Study
  Country: US (occurrence: US)
  Receive Date: 20210617
  Receipt Date: 20210901
  Transmission Date: 20211014
  Serious: Yes (Death, Other)
  Sender: FDA-Public Use
  Company Number: US-ACADIA PHARMACEUTICALS INC.-ACA-2021-PIM-002171

PATIENT
  Sex: Male

DRUGS (8)
  1. NUPLAZID [Suspect]
     Active Substance: PIMAVANSERIN TARTRATE
     Indication: PARKINSON^S DISEASE
     Dosage: 34 MILLIGRAM, QD
     Route: 048
     Dates: start: 20190426
  2. NUPLAZID [Suspect]
     Active Substance: PIMAVANSERIN TARTRATE
     Dosage: 34 MILLIGRAM, QD
     Route: 048
     Dates: start: 20190523, end: 20210530
  3. NORTHERA [Concomitant]
     Active Substance: DROXIDOPA
     Dosage: 400MG IN MORNING, 400MG IN AFTERNOON, 200MG AT NIGHT
  4. DROXIDOPA [Concomitant]
     Active Substance: DROXIDOPA
  5. QUETIAPINE. [Concomitant]
     Active Substance: QUETIAPINE
  6. LIPITOR [Concomitant]
     Active Substance: ATORVASTATIN CALCIUM
  7. RYTARY [Concomitant]
     Active Substance: CARBIDOPA\LEVODOPA
  8. ASPIRIN [ACETYLSALICYLIC ACID] [Concomitant]
     Active Substance: ASPIRIN

REACTIONS (3)
  - Syncope [Recovered/Resolved]
  - Cerebrovascular accident [Recovered/Resolved]
  - Aortic stenosis [Recovered/Resolved]
